FAERS Safety Report 7617932-3 (Version None)
Quarter: 2011Q3

REPORT INFORMATION
  Report Type: 
  Country: None (occurrence: None)
  Receive Date: 20110718
  Receipt Date: 20110701
  Transmission Date: 20111222
  Serious: Yes (Hospitalization, Other)
  Sender: FDA-Public Use
  Company Number: PHHY2011BR59149

PATIENT
  Age: 54 Year
  Sex: Female

DRUGS (2)
  1. EXFORGE [Suspect]
     Dosage: 160 MG VALS AND 5 MG AMLO, 1 TABLET A DAY
  2. EXFORGE [Suspect]
     Dosage: 160 MG VALS AND 5 MG AMLO, 1 TABLET EACH 12 HOURS (TWICE A DAY)
     Dates: start: 20110629

REACTIONS (5)
  - NAUSEA [None]
  - VOMITING [None]
  - BLOOD PRESSURE INADEQUATELY CONTROLLED [None]
  - MYOCARDIAL INFARCTION [None]
  - DIABETES MELLITUS INADEQUATE CONTROL [None]
